FAERS Safety Report 23302064 (Version 2)
Quarter: 2023Q4

REPORT INFORMATION
  Report Type: Spontaneous
  Country: FR (occurrence: FR)
  Receive Date: 20231215
  Receipt Date: 20231221
  Transmission Date: 20240110
  Serious: Yes (Other)
  Sender: FDA-Public Use
  Company Number: FR-AMERICAN REGENT INC-2023002917

PATIENT
  Age: 76 Year
  Sex: Male
  Weight: 81 kg

DRUGS (2)
  1. VENOFER [Suspect]
     Active Substance: IRON SUCROSE
     Indication: Anaemia
     Dosage: 300 MILLIGRAM (20 MG/ML)
     Dates: start: 20231117, end: 20231121
  2. CORTICOSTEROID NOS [Concomitant]
     Active Substance: CORTICOSTEROID NOS
     Indication: Immune-mediated lung disease
     Dosage: UNK
     Route: 065

REACTIONS (3)
  - Venous thrombosis [Not Recovered/Not Resolved]
  - Injection site extravasation [Not Recovered/Not Resolved]
  - Vessel puncture site inflammation [Not Recovered/Not Resolved]

NARRATIVE: CASE EVENT DATE: 20231120
